FAERS Safety Report 18255903 (Version 1)
Quarter: 2020Q3

REPORT INFORMATION
  Report Type: Other
  Country: US (occurrence: US)
  Receive Date: 20200910
  Receipt Date: 20200910
  Transmission Date: 20201103
  Serious: No
  Sender: FDA-Public Use
  Company Number: US-LEADIANT BIOSCIENCES INC-2019STPI000530

PATIENT

DRUGS (12)
  1. COLLAGENASE [Concomitant]
     Active Substance: COLLAGENASE CLOSTRIDIUM HISTOLYTICUM
  2. METOPROLOL TARTRATE. [Concomitant]
     Active Substance: METOPROLOL TARTRATE
  3. GLIMEPIRIDE. [Concomitant]
     Active Substance: GLIMEPIRIDE
  4. PREDNISONE. [Concomitant]
     Active Substance: PREDNISONE
  5. HUMALOG [Concomitant]
     Active Substance: INSULIN LISPRO
  6. SINEMET [Concomitant]
     Active Substance: CARBIDOPA\LEVODOPA
  7. MATULANE [Suspect]
     Active Substance: PROCARBAZINE HYDROCHLORIDE
     Indication: CUTANEOUS T-CELL LYMPHOMA
     Dosage: 50 MILLIGRAM, QD
     Route: 048
     Dates: start: 20190720
  8. TAMSULOSIN [Concomitant]
     Active Substance: TAMSULOSIN
  9. CLOBETASOL [Concomitant]
     Active Substance: CLOBETASOL
  10. LEVEMIR [Concomitant]
     Active Substance: INSULIN DETEMIR
  11. LUMIGAN [Concomitant]
     Active Substance: BIMATOPROST
  12. NYSTATIN. [Concomitant]
     Active Substance: NYSTATIN

REACTIONS (2)
  - Alopecia [Not Recovered/Not Resolved]
  - Oral pain [Not Recovered/Not Resolved]
